FAERS Safety Report 24531518 (Version 1)
Quarter: 2024Q4

REPORT INFORMATION
  Report Type: Report from Study
  Country: US (occurrence: US)
  Receive Date: 20241022
  Receipt Date: 20241022
  Transmission Date: 20250115
  Serious: No
  Sender: ROCHE
  Company Number: US-ROCHE-3551293

PATIENT
  Age: 31 Year
  Sex: Female
  Weight: 57.7 kg

DRUGS (31)
  1. PULMOZYME [Suspect]
     Active Substance: DORNASE ALFA
     Indication: Cystic fibrosis lung
     Route: 065
     Dates: start: 20240102
  2. ACETAMINOPHEN [Concomitant]
     Active Substance: ACETAMINOPHEN
  3. ALBUTEROL SULFATE [Concomitant]
     Active Substance: ALBUTEROL SULFATE
  4. ADVAIR HFA [Concomitant]
     Active Substance: FLUTICASONE PROPIONATE\SALMETEROL XINAFOATE
  5. ALBUTEROL SULFATE [Concomitant]
     Active Substance: ALBUTEROL SULFATE
  6. AMICAR [Concomitant]
     Active Substance: AMINOCAPROIC ACID
  7. AZITHROMYCIN [Concomitant]
     Active Substance: AZITHROMYCIN
  8. DIETARY SUPPLEMENT [Concomitant]
     Active Substance: DIETARY SUPPLEMENT
  9. CAYSTON [Concomitant]
     Active Substance: AZTREONAM
  10. CETIRIZINE HYDROCHLORIDE [Concomitant]
     Active Substance: CETIRIZINE HYDROCHLORIDE
  11. CIPROFLOXACIN [Concomitant]
     Active Substance: CIPROFLOXACIN
  12. DEXAMETHASONE [Concomitant]
     Active Substance: DEXAMETHASONE
  13. DROPLETS (UNK INGREDIENTS) [Concomitant]
  14. ERYTHROMYCIN [Concomitant]
     Active Substance: ERYTHROMYCIN
  15. FLUTICASONE [Concomitant]
     Active Substance: FLUTICASONE
  16. FOLIC ACID [Concomitant]
     Active Substance: FOLIC ACID
  17. GABAPENTIN [Concomitant]
     Active Substance: GABAPENTIN
  18. IBUPROFEN [Concomitant]
     Active Substance: IBUPROFEN
  19. KETODEX [Concomitant]
  20. LANTUS [Concomitant]
     Active Substance: INSULIN GLARGINE
  21. LORYNA [Concomitant]
     Active Substance: DROSPIRENONE\ETHINYL ESTRADIOL
  22. METHOCARBAMOL [Concomitant]
     Active Substance: METHOCARBAMOL
  23. NOVOLOG [Concomitant]
     Active Substance: INSULIN ASPART
  24. OMEPRAZOLE [Concomitant]
     Active Substance: OMEPRAZOLE
  25. OXYCODONE [Concomitant]
     Active Substance: OXYCODONE
  26. POLYETHYLENE GLYCOL 4000 [Concomitant]
     Active Substance: POLYETHYLENE GLYCOL 4000
  27. SENNAE [Concomitant]
  28. SERTRALINE [Concomitant]
     Active Substance: SERTRALINE HYDROCHLORIDE
  29. SODIUM CHLORIDE [Concomitant]
     Active Substance: SODIUM CHLORIDE
  30. SULFAMETHOXAZOLE [Concomitant]
     Active Substance: SULFAMETHOXAZOLE
  31. TRIKAFTA [Concomitant]
     Active Substance: ELEXACAFTOR\IVACAFTOR\TEZACAFTOR

REACTIONS (5)
  - Pseudomonas infection [Unknown]
  - Anxiety [Unknown]
  - Nasopharyngitis [Unknown]
  - Gastrooesophageal reflux disease [Unknown]
  - Pancreatic failure [Unknown]

NARRATIVE: CASE EVENT DATE: 20240419
